FAERS Safety Report 11087839 (Version 3)
Quarter: 2015Q2

REPORT INFORMATION
  Report Type: Report from Study
  Country: US (occurrence: US)
  Receive Date: 20150504
  Receipt Date: 20150511
  Transmission Date: 20150821
  Serious: Yes (Other)
  Sender: FDA-Public Use
  Company Number: US-LEO PHARMA-234052

PATIENT
  Age: 57 Year
  Sex: Male

DRUGS (2)
  1. SARNA [Suspect]
     Active Substance: CAMPHOR (NATURAL)\MENTHOL\PRAMOXINE HYDROCHLORIDE
     Indication: PRURITUS
  2. DAIVOBET [Suspect]
     Active Substance: BETAMETHASONE DIPROPIONATE\CALCIPOTRIENE
     Indication: PSORIASIS

REACTIONS (4)
  - Peripheral swelling [Recovered/Resolved]
  - Skin infection [Recovered/Resolved]
  - Wound [Recovered/Resolved]
  - Blister [Recovered/Resolved]
